FAERS Safety Report 5764007-4 (Version None)
Quarter: 2008Q2

REPORT INFORMATION
  Report Type: 
  Country: None (occurrence: None)
  Receive Date: 20080605
  Receipt Date: 20080527
  Transmission Date: 20081010
  Serious: Yes (Other)
  Sender: FDA-Public Use
  Company Number: JPI-P-003759

PATIENT
  Age: 54 Year
  Sex: Female
  Weight: 53.5244 kg

DRUGS (6)
  1. XYREM [Suspect]
     Indication: FIBROMYALGIA
     Dosage: 4.5 GM (2.25 GM, 2 IN 1 D); ORAL,7.5 GM (3.75 GM, 2 IN 1 D), ORAL, 6 QM, (3GM, 2 IN 1 D); ORAL
     Route: 048
     Dates: start: 20080505, end: 20080518
  2. XYREM [Suspect]
     Indication: INSOMNIA
     Dosage: 4.5 GM (2.25 GM, 2 IN 1 D); ORAL,7.5 GM (3.75 GM, 2 IN 1 D), ORAL, 6 QM, (3GM, 2 IN 1 D); ORAL
     Route: 048
     Dates: start: 20080505, end: 20080518
  3. XYREM [Suspect]
     Indication: FIBROMYALGIA
     Dosage: 4.5 GM (2.25 GM, 2 IN 1 D); ORAL,7.5 GM (3.75 GM, 2 IN 1 D), ORAL, 6 QM, (3GM, 2 IN 1 D); ORAL
     Route: 048
     Dates: start: 20080519, end: 20080525
  4. XYREM [Suspect]
     Indication: INSOMNIA
     Dosage: 4.5 GM (2.25 GM, 2 IN 1 D); ORAL,7.5 GM (3.75 GM, 2 IN 1 D), ORAL, 6 QM, (3GM, 2 IN 1 D); ORAL
     Route: 048
     Dates: start: 20080519, end: 20080525
  5. XYREM [Suspect]
     Indication: FIBROMYALGIA
     Dosage: 4.5 GM (2.25 GM, 2 IN 1 D); ORAL,7.5 GM (3.75 GM, 2 IN 1 D), ORAL, 6 QM, (3GM, 2 IN 1 D); ORAL
     Route: 048
     Dates: start: 20080526, end: 20080527
  6. XYREM [Suspect]
     Indication: INSOMNIA
     Dosage: 4.5 GM (2.25 GM, 2 IN 1 D); ORAL,7.5 GM (3.75 GM, 2 IN 1 D), ORAL, 6 QM, (3GM, 2 IN 1 D); ORAL
     Route: 048
     Dates: start: 20080526, end: 20080527

REACTIONS (11)
  - ARTHROPOD BITE [None]
  - BLOOD PRESSURE INCREASED [None]
  - DEHYDRATION [None]
  - DYSGEUSIA [None]
  - ERYTHEMA [None]
  - FEELING ABNORMAL [None]
  - HYPERHIDROSIS [None]
  - OILY SKIN [None]
  - RASH PRURITIC [None]
  - TINNITUS [None]
  - URINARY TRACT INFECTION [None]
